FAERS Safety Report 5674460-2 (Version None)
Quarter: 2008Q2

REPORT INFORMATION
  Report Type: 
  Country: None (occurrence: None)
  Receive Date: 20080303
  Receipt Date: 20070423
  Transmission Date: 20081010
  Serious: Yes (Other)
  Sender: FDA-Public Use
  Company Number: MK-6032757

PATIENT
  Age: 17 Year
  Sex: Female

DRUGS (3)
  1. AMNESTEEM [Suspect]
     Indication: ACNE
     Dosage: ORAL
     Route: 048
     Dates: start: 20070305, end: 20070418
  2. ACCUTANE [Concomitant]
  3. BIRTH CONTROL PILL [Concomitant]

REACTIONS (2)
  - DIZZINESS [None]
  - HEADACHE [None]
